FAERS Safety Report 7675466-4 (Version None)
Quarter: 2011Q3

REPORT INFORMATION
  Report Type: 
  Country: None (occurrence: None)
  Receive Date: 20110810
  Receipt Date: 20110727
  Transmission Date: 20111222
  Serious: Yes (Hospitalization)
  Sender: FDA-Public Use
  Company Number: IT-CELGENEUS-083-21880-10071735

PATIENT
  Sex: Male
  Weight: 64.3 kg

DRUGS (3)
  1. REVLIMID [Suspect]
     Dosage: 5 MILLIGRAM
     Route: 048
     Dates: start: 20100627, end: 20100708
  2. ASPIRIN [Concomitant]
     Route: 065
     Dates: end: 20100708
  3. PREDNISONE [Concomitant]
     Dosage: 25 MILLIGRAM
     Route: 065
     Dates: start: 20100701, end: 20100707

REACTIONS (4)
  - TUMOUR LYSIS SYNDROME [None]
  - TUMOUR FLARE [None]
  - THROMBOCYTOPENIA [None]
  - ANAEMIA [None]
